FAERS Safety Report 4272257-1 (Version None)
Quarter: 2004Q1

REPORT INFORMATION
  Report Type: 
  Country: None (occurrence: None)
  Receive Date: 20040114
  Receipt Date: 20040104
  Transmission Date: 20041129
  Serious: Yes (Life-Threatening, Hospitalization)
  Sender: FDA-Public Use
  Company Number: 2004000937

PATIENT
  Age: 64 Year
  Sex: Male

DRUGS (9)
  1. AMLODIPINE [Suspect]
     Indication: CORONARY ARTERY DISEASE
     Dosage: 10 MG (DAILY), ORAL
     Route: 048
     Dates: start: 20021016, end: 20031124
  2. AMLODIPINE [Suspect]
     Indication: HYPERTENSION
     Dosage: 10 MG (DAILY), ORAL
     Route: 048
     Dates: start: 20021016, end: 20031124
  3. WARFARIN SODIUM [Suspect]
     Indication: ATRIAL FIBRILLATION
     Dosage: 1 MG (DAILY), ORAL
     Route: 048
     Dates: start: 20030417, end: 20031124
  4. ISOSORBIDE (ISOSORBIDE) [Concomitant]
  5. BISOPROLOL FUMARATE [Concomitant]
  6. BETYAHISTINE HYDROCHLORIDE (BETAHISTINE HYDROCHLORIDE) [Concomitant]
  7. FUROSEMIDE [Concomitant]
  8. PRAVASTATIN [Concomitant]
  9. PROCHLORPERAZINE MALEATE [Concomitant]

REACTIONS (3)
  - CEREBRAL HAEMORRHAGE [None]
  - INTERNATIONAL NORMALISED RATIO DECREASED [None]
  - THROMBOCYTOPENIA [None]
